FAERS Safety Report 6309259-7 (Version None)
Quarter: 2009Q3

REPORT INFORMATION
  Report Type: 
  Country: None (occurrence: None)
  Receive Date: 20090811
  Receipt Date: 20090731
  Transmission Date: 20100115
  Serious: Yes (Hospitalization)
  Sender: FDA-Public Use
  Company Number: 2009-00625

PATIENT
  Age: 53 Year
  Sex: Female

DRUGS (15)
  1. VELCADE [Suspect]
     Indication: MULTIPLE MYELOMA
     Dosage: 2.3 MG, INTRAVENOUS
     Route: 042
     Dates: start: 20080519, end: 20090209
  2. PLACEBO() [Suspect]
     Indication: MULTIPLE MYELOMA
     Dosage: 250 MG, INTRAVENOUS
     Route: 042
     Dates: start: 20080519, end: 20090209
  3. DEXAMETHASONE TAB [Suspect]
     Indication: MULTIPLE MYELOMA
     Dosage: 20 MG, ORAL
     Route: 048
     Dates: start: 20080922, end: 20081222
  4. ZOMETA [Concomitant]
  5. ACYCLOVIR [Concomitant]
  6. ALLOPURINOL [Concomitant]
  7. SULFAMETHOXAZOLE AND TRIMETHOPRIM [Concomitant]
  8. DOCUSATE (DOCUSATE) [Concomitant]
  9. MIGRALEVE (CODEINE PHOSPHATE, BUCLIZINE HYDROCHLORIDE, PARACETAMOL) [Concomitant]
  10. METOCLOPRAMIDE [Concomitant]
  11. HYDROCORTONE [Concomitant]
  12. PHOSPHATES ENEMA (SODIUM PHOSPHATE, SODIUM PHOSPHATE MONOBASIC (ANHYDR [Concomitant]
  13. LANSOPRAZOLE [Concomitant]
  14. SENNA (SENNA) [Concomitant]
  15. CHLORPHENIRAMINE MALEATE [Concomitant]

REACTIONS (5)
  - ARTHRITIS INFECTIVE [None]
  - JOINT ABSCESS [None]
  - MUSCLE HAEMORRHAGE [None]
  - PYREXIA [None]
  - WEIGHT BEARING DIFFICULTY [None]
